FAERS Safety Report 24450040 (Version 3)
Quarter: 2024Q4

REPORT INFORMATION
  Report Type: Report from Study
  Country: CA (occurrence: CA)
  Receive Date: 20241017
  Receipt Date: 20241231
  Transmission Date: 20250114
  Serious: Yes (Hospitalization)
  Sender: DR REDDYS
  Company Number: CA-DRL-USA-CLI/CAN/24/0015338

PATIENT
  Age: 73 Year
  Sex: Male
  Weight: 63.7 kg

DRUGS (58)
  1. AZACITIDINE [Suspect]
     Active Substance: AZACITIDINE
     Indication: Myeloproliferative neoplasm
     Dosage: 15 DAY (4 CYCLE)
     Route: 058
     Dates: start: 20240408, end: 20240908
  2. AZACITIDINE [Suspect]
     Active Substance: AZACITIDINE
     Dosage: AZACITIDINE+VENETOCLAX: 100 MG FOR 14 DAYS.
     Route: 065
  3. VENETOCLAX [Suspect]
     Active Substance: VENETOCLAX
     Indication: Product used for unknown indication
     Dosage: 15 DAY (4 CYCLE)
     Route: 048
     Dates: start: 20240408, end: 20241007
  4. VENETOCLAX [Suspect]
     Active Substance: VENETOCLAX
     Route: 048
     Dates: start: 20240517, end: 20240718
  5. VENETOCLAX [Suspect]
     Active Substance: VENETOCLAX
     Route: 048
     Dates: start: 20240408, end: 20240516
  6. VENETOCLAX [Suspect]
     Active Substance: VENETOCLAX
     Dosage: AZACITIDINE+VENETOCLAX: 100 MG FOR 14 DAYS.
     Route: 065
  7. BUPROPION [Concomitant]
     Active Substance: BUPROPION
     Indication: Depression
     Route: 048
     Dates: start: 20190101
  8. MIRABEGRON [Concomitant]
     Active Substance: MIRABEGRON
     Indication: Hypertonic bladder
     Route: 048
     Dates: start: 20190101
  9. TADALAFIL [Concomitant]
     Active Substance: TADALAFIL
     Indication: Hypertonic bladder
     Route: 048
     Dates: start: 20190101
  10. TRINTELLIX [Concomitant]
     Active Substance: VORTIOXETINE HYDROBROMIDE
     Indication: Depression
     Route: 048
     Dates: start: 20220101
  11. TAMSULOSIN [Concomitant]
     Active Substance: TAMSULOSIN
     Indication: Hypertonic bladder
     Route: 048
     Dates: start: 20190101
  12. Levodop Carbidop [Concomitant]
     Indication: Parkinson^s disease
     Route: 048
     Dates: start: 20230701
  13. ONDANSETRON [Concomitant]
     Active Substance: ONDANSETRON
     Indication: Prophylaxis of nausea and vomiting
     Route: 048
     Dates: start: 20240408
  14. RUXOLITINIB [Concomitant]
     Active Substance: RUXOLITINIB
     Indication: Splenomegaly
     Route: 048
     Dates: start: 20240508
  15. RUXOLITINIB [Concomitant]
     Active Substance: RUXOLITINIB
     Route: 048
     Dates: start: 20240506, end: 20240507
  16. RUXOLITINIB [Concomitant]
     Active Substance: RUXOLITINIB
     Route: 048
     Dates: start: 20220601, end: 20240327
  17. RUXOLITINIB [Concomitant]
     Active Substance: RUXOLITINIB
     Route: 048
     Dates: start: 20240327, end: 20240506
  18. ALLOPURINOL [Concomitant]
     Active Substance: ALLOPURINOL
     Indication: Gout
     Route: 048
     Dates: start: 20240711
  19. PANTOPRAZOLE [Concomitant]
     Active Substance: PANTOPRAZOLE
     Indication: Dyspepsia
     Route: 048
     Dates: start: 20240711
  20. VITAMIN D [Concomitant]
     Active Substance: VITAMIN D NOS
     Indication: Osteoporosis prophylaxis
     Route: 048
     Dates: start: 20240710
  21. VORTIOXETINE [Concomitant]
     Active Substance: VORTIOXETINE
     Indication: Depression
     Dosage: QHS (ONCE A DAY AT BEDTIME)
     Route: 048
     Dates: start: 20240710
  22. ATOVAQUONE [Concomitant]
     Active Substance: ATOVAQUONE
     Indication: Pneumonia
     Dosage: QHS (ONCE A DAY AT BEDTIME)
     Route: 048
     Dates: start: 20240730
  23. CIPROFLOXACIN [Concomitant]
     Active Substance: CIPROFLOXACIN
     Indication: Febrile neutropenia
     Route: 048
     Dates: start: 20240520, end: 20240524
  24. CIPROFLOXACIN [Concomitant]
     Active Substance: CIPROFLOXACIN
     Dosage: QHS (ONCE A DAY AT BEDTIME)
     Route: 048
     Dates: start: 20240730
  25. ISAVUCONAZOLE [Concomitant]
     Active Substance: ISAVUCONAZOLE
     Indication: Pneumonia
     Dosage: QHS (ONCE A DAY AT BEDTIME)
     Route: 048
     Dates: start: 20240807
  26. REMDESIVIR [Concomitant]
     Active Substance: REMDESIVIR
     Indication: Pneumonia
     Dosage: QHS (ONCE A DAY AT BEDTIME)
     Route: 042
     Dates: start: 20241008
  27. COLCHICINE [Concomitant]
     Active Substance: COLCHICINE
     Indication: Gout
     Route: 048
     Dates: start: 20230901, end: 20240520
  28. ALLOPURINOL [Concomitant]
     Active Substance: ALLOPURINOL
     Indication: Gout
     Route: 048
     Dates: start: 20230901, end: 20240710
  29. SODIUM CHLORIDE [Concomitant]
     Active Substance: SODIUM CHLORIDE
     Indication: Tumour lysis syndrome
     Dosage: 1000 PER HOURS CONTINUOUSLY
     Route: 042
     Dates: start: 20240408, end: 20240424
  30. SODIUM CHLORIDE [Concomitant]
     Active Substance: SODIUM CHLORIDE
     Indication: Chronic kidney disease
     Dosage: 1000 PER HOURS CONTINUOUSLY
     Route: 042
     Dates: start: 20240603, end: 20240603
  31. RHINOCORT AQUA [Concomitant]
     Active Substance: BUDESONIDE
     Indication: Cough
     Route: 045
     Dates: start: 20240426, end: 20240710
  32. SYMBICORT [Concomitant]
     Active Substance: BUDESONIDE\FORMOTEROL FUMARATE DIHYDRATE
     Indication: Cough
     Dosage: WHEN NECESSARY (PRN)
     Route: 055
     Dates: start: 20240425, end: 20240502
  33. SYMBICORT [Concomitant]
     Active Substance: BUDESONIDE\FORMOTEROL FUMARATE DIHYDRATE
     Dosage: WHEN NECESSARY (PRN)
     Route: 055
     Dates: start: 20240508, end: 20240710
  34. CODEINE [Concomitant]
     Active Substance: CODEINE
     Indication: Cough
     Dosage: Q6HRS PRN (EVERY SIX HOUR)
     Route: 048
     Dates: start: 20240508, end: 202405
  35. VORICONAZOLE [Concomitant]
     Active Substance: VORICONAZOLE
     Indication: Pneumonia
     Route: 048
     Dates: start: 20240517, end: 20240709
  36. PIPERACILLIN SODIUM\TAZOBACTAM SODIUM [Concomitant]
     Active Substance: PIPERACILLIN SODIUM\TAZOBACTAM SODIUM
     Indication: Pneumonia
     Dosage: EVERY SIX HOURS
     Route: 042
     Dates: start: 20240517, end: 20240521
  37. PIPERACILLIN SODIUM\TAZOBACTAM SODIUM [Concomitant]
     Active Substance: PIPERACILLIN SODIUM\TAZOBACTAM SODIUM
     Indication: Pyrexia
     Dosage: EVERY 8 HOURS
     Route: 042
     Dates: start: 20240710, end: 20240715
  38. AZITHROMYCIN [Concomitant]
     Active Substance: AZITHROMYCIN
     Indication: Pneumonia
     Route: 042
     Dates: start: 20240518, end: 20240521
  39. PREDNISONE [Concomitant]
     Active Substance: PREDNISONE
     Indication: Pneumonia
     Route: 048
     Dates: start: 20240518, end: 20240521
  40. PREDNISONE [Concomitant]
     Active Substance: PREDNISONE
     Indication: Gout
     Route: 048
     Dates: start: 20240605, end: 20240610
  41. LEVOFLOXACIN [Concomitant]
     Active Substance: LEVOFLOXACIN
     Indication: Pneumonia
     Route: 048
     Dates: start: 20240522, end: 20240527
  42. AMOXICILLIN\CLAVULANIC ACID [Concomitant]
     Active Substance: AMOXICILLIN\CLAVULANIC ACID
     Indication: Pneumonia
     Route: 048
     Dates: start: 20240520, end: 20240524
  43. AMOXICILLIN\CLAVULANIC ACID [Concomitant]
     Active Substance: AMOXICILLIN\CLAVULANIC ACID
     Route: 048
     Dates: start: 20240709, end: 20240710
  44. SEPTRA [Concomitant]
     Active Substance: SULFAMETHOXAZOLE\TRIMETHOPRIM
     Indication: Pneumonia
     Route: 048
     Dates: start: 20240529, end: 20240603
  45. ATOVAQUONE [Concomitant]
     Active Substance: ATOVAQUONE
     Indication: Pneumonia
     Route: 048
     Dates: start: 20240605, end: 20240710
  46. ATOVAQUONE [Concomitant]
     Active Substance: ATOVAQUONE
     Route: 048
     Dates: start: 20240711, end: 20240727
  47. HYDROXYUREA [Concomitant]
     Active Substance: HYDROXYUREA
     Indication: Pneumonia
     Route: 048
     Dates: start: 20240605, end: 20240710
  48. ENOXAPARIN [Concomitant]
     Active Substance: ENOXAPARIN
     Indication: Deep vein thrombosis
     Route: 058
     Dates: start: 20240710, end: 20240711
  49. VALACYCLOVIR [Concomitant]
     Active Substance: VALACYCLOVIR HYDROCHLORIDE
     Indication: Viral infection
     Route: 048
     Dates: start: 20240710, end: 20240711
  50. VORICONAZOLE [Concomitant]
     Active Substance: VORICONAZOLE
     Indication: Viral infection
     Route: 048
     Dates: start: 20240711, end: 20240711
  51. VORICONAZOLE [Concomitant]
     Active Substance: VORICONAZOLE
     Route: 048
     Dates: start: 20240722, end: 20240725
  52. VORICONAZOLE [Concomitant]
     Active Substance: VORICONAZOLE
     Route: 048
     Dates: start: 20240712, end: 20240721
  53. ISAVUCONAZOLE [Concomitant]
     Active Substance: ISAVUCONAZOLE
     Indication: Pneumonia
     Route: 042
     Dates: start: 20240727, end: 20240730
  54. ISAVUCONAZOLE [Concomitant]
     Active Substance: ISAVUCONAZOLE
     Route: 042
     Dates: start: 20240730, end: 20240806
  55. MEROPENEM [Concomitant]
     Active Substance: MEROPENEM
     Indication: Pneumonia
     Route: 042
     Dates: start: 20240729, end: 20240801
  56. MEROPENEM [Concomitant]
     Active Substance: MEROPENEM
     Dosage: EVERY 8 HOUR
     Route: 042
     Dates: start: 20240801, end: 20240806
  57. ACYCLOVIR [Concomitant]
     Active Substance: ACYCLOVIR
     Indication: Viral infection
     Route: 042
     Dates: start: 20240729, end: 20240802
  58. cephallexin [Concomitant]
     Indication: Gout
     Route: 048
     Dates: start: 20240818, end: 20240831

REACTIONS (4)
  - Pneumonia [Recovered/Resolved]
  - COVID-19 [Recovered/Resolved]
  - Pneumonia fungal [Not Recovered/Not Resolved]
  - Drug interaction [Unknown]

NARRATIVE: CASE EVENT DATE: 20240710
